FAERS Safety Report 6789105-8 (Version None)
Quarter: 2010Q2

REPORT INFORMATION
  Report Type: 
  Country: None (occurrence: None)
  Receive Date: 20100623
  Receipt Date: 20080818
  Transmission Date: 20101027
  Serious: No
  Sender: FDA-Public Use
  Company Number: US-PFIZER INC-2008034419

PATIENT
  Sex: Female
  Weight: 81.65 kg

DRUGS (6)
  1. CADUET [Suspect]
     Indication: HYPERTENSION
     Dosage: 10MG/10MG
     Dates: start: 20080411
  2. CADUET [Suspect]
     Indication: BLOOD CHOLESTEROL INCREASED
  3. SIMVASTATIN [Suspect]
  4. AMLODIPINE [Concomitant]
  5. GENERAL NUTRIENTS [Concomitant]
  6. IBUPROFEN [Concomitant]

REACTIONS (8)
  - ASTHENIA [None]
  - BLOOD URIC ACID INCREASED [None]
  - FEELING COLD [None]
  - HEART RATE INCREASED [None]
  - MYALGIA [None]
  - PRURITUS [None]
  - SPEECH DISORDER [None]
  - UNEVALUABLE EVENT [None]
